FAERS Safety Report 19360469 (Version 1)
Quarter: 2021Q2

REPORT INFORMATION
  Report Type: Report from Study
  Country: None (occurrence: US)
  Receive Date: 20210602
  Receipt Date: 20210602
  Transmission Date: 20210717
  Serious: No
  Sender: FDA-Public Use
  Company Number: US-MDD US OPERATIONS-USW202006-001307

PATIENT
  Age: 49 Year
  Sex: Male

DRUGS (9)
  1. CARBIDOPA LEVODOPA [Concomitant]
     Active Substance: CARBIDOPA\LEVODOPA
     Dosage: NOT PROVIDED
  2. APOKYN [Suspect]
     Active Substance: APOMORPHINE HYDROCHLORIDE
     Route: 058
     Dates: start: 20200629, end: 20200713
  3. APOKYN [Suspect]
     Active Substance: APOMORPHINE HYDROCHLORIDE
     Indication: PARKINSON^S DISEASE
     Route: 058
     Dates: start: 20200624
  4. APOKYN [Suspect]
     Active Substance: APOMORPHINE HYDROCHLORIDE
     Route: 058
     Dates: start: 20200625
  5. APOKYN [Suspect]
     Active Substance: APOMORPHINE HYDROCHLORIDE
     Route: 058
     Dates: start: 20200626
  6. METOPROLOL. [Concomitant]
     Active Substance: METOPROLOL
     Dosage: NOT PROVIDED
  7. APOKYN [Suspect]
     Active Substance: APOMORPHINE HYDROCHLORIDE
     Route: 058
     Dates: start: 20200624
  8. LEVODOPA [Concomitant]
     Active Substance: LEVODOPA
     Dosage: NOT PROVIDED
  9. APOKYN [Suspect]
     Active Substance: APOMORPHINE HYDROCHLORIDE
     Route: 058

REACTIONS (10)
  - Tinnitus [Recovered/Resolved]
  - Somnolence [Recovered/Resolved]
  - Nausea [Recovered/Resolved]
  - Heart rate decreased [Unknown]
  - Dyspepsia [Recovered/Resolved]
  - Painful erection [Recovered/Resolved]
  - Anxiety [Recovered/Resolved]
  - Blood pressure decreased [Unknown]
  - Yawning [Recovered/Resolved]
  - Palpitations [Recovered/Resolved]

NARRATIVE: CASE EVENT DATE: 20200624
